FAERS Safety Report 6181123-6 (Version None)
Quarter: 2009Q2

REPORT INFORMATION
  Report Type: 
  Country: None (occurrence: None)
  Receive Date: 20090501
  Receipt Date: 20090206
  Transmission Date: 20091009
  Serious: No
  Sender: FDA-Public Use
  Company Number: 2009000059

PATIENT
  Age: 57 Year
  Sex: Female
  Weight: 87.0906 kg

DRUGS (5)
  1. TREANDA [Suspect]
     Indication: CHRONIC LYMPHOCYTIC LEUKAEMIA
     Dosage: 7.1429 MG (200 MG, 1 IN 4 WK) , INTRAVENOUS
     Route: 042
     Dates: start: 20081124
  2. TREANDA [Suspect]
     Indication: NON-HODGKIN'S LYMPHOMA
     Dosage: 7.1429 MG (200 MG, 1 IN 4 WK) , INTRAVENOUS
     Route: 042
     Dates: start: 20081124
  3. BENADRYL [Concomitant]
  4. DEXAMETHASONE 4MG TAB [Concomitant]
  5. ZOFRAN [Concomitant]

REACTIONS (2)
  - RASH GENERALISED [None]
  - RASH PRURITIC [None]
